FAERS Safety Report 18047630 (Version 4)
Quarter: 2020Q3

REPORT INFORMATION
  Report Type: Spontaneous
  Country: US (occurrence: US)
  Receive Date: 20200721
  Receipt Date: 20200828
  Transmission Date: 20201103
  Serious: No
  Sender: FDA-Public Use
  Company Number: US-AMGEN-USASP2020115448

PATIENT
  Sex: Female

DRUGS (3)
  1. NEULASTA [Suspect]
     Active Substance: PEGFILGRASTIM
     Dosage: UNK
     Route: 065
  2. NEULASTA [Suspect]
     Active Substance: PEGFILGRASTIM
     Indication: PRODUCT USED FOR UNKNOWN INDICATION
     Dosage: UNK
     Route: 065
  3. NEULASTA [Suspect]
     Active Substance: PEGFILGRASTIM
     Dosage: UNK
     Route: 065

REACTIONS (11)
  - Throat irritation [Unknown]
  - Nausea [Unknown]
  - Burning sensation [Unknown]
  - Abdominal pain upper [Unknown]
  - Device use error [Unknown]
  - Diarrhoea [Unknown]
  - Bone pain [Unknown]
  - Hypophagia [Unknown]
  - Vision blurred [Unknown]
  - Device alarm issue [Unknown]
  - Dehydration [Unknown]

NARRATIVE: CASE EVENT DATE: 20200715
